FAERS Safety Report 5345556-X (Version None)
Quarter: 2007Q2

REPORT INFORMATION
  Report Type: 
  Country: None (occurrence: None)
  Receive Date: 20070601
  Receipt Date: 20070601
  Transmission Date: 20071010
  Serious: Yes (Other)
  Sender: FDA-Public Use
  Company Number: None

PATIENT
  Age: 42 Year
  Sex: Male
  Weight: 92.0802 kg

DRUGS (3)
  1. GABAPENTIN [Suspect]
     Indication: GLOSSOPHARYNGEAL NEURALGIA
     Dosage: 3 CAPSULES DAILY PO
     Route: 048
     Dates: start: 20070525, end: 20070530
  2. GABAPENTIN [Suspect]
     Indication: PAIN MANAGEMENT
     Dosage: 3 CAPSULES DAILY PO
     Route: 048
     Dates: start: 20070525, end: 20070530
  3. GABAPENTIN [Suspect]
     Indication: TRIGEMINAL NEURALGIA
     Dosage: 3 CAPSULES DAILY PO
     Route: 048
     Dates: start: 20070525, end: 20070530

REACTIONS (5)
  - DUPUYTREN'S CONTRACTURE [None]
  - HYPOAESTHESIA [None]
  - MUSCLE TWITCHING [None]
  - PARAESTHESIA [None]
  - RASH ERYTHEMATOUS [None]
